FAERS Safety Report 13142788 (Version 2)
Quarter: 2017Q1

REPORT INFORMATION
  Report Type: Report from Study
  Country: IE (occurrence: IE)
  Receive Date: 20170124
  Receipt Date: 20170210
  Transmission Date: 20170428
  Serious: Yes (Hospitalization, Other)
  Sender: FDA-Public Use
  Company Number: IE-AMGEN-IRLSL2016064542

PATIENT
  Age: 56 Year
  Sex: Female

DRUGS (8)
  1. PROCORALAN [Concomitant]
     Active Substance: IVABRADINE
     Dosage: 5 MG, QD
  2. SOLPADEINE [Concomitant]
     Indication: BACK PAIN
     Dosage: 6 TABLETS, QD
  3. ZIMOVANE [Concomitant]
     Active Substance: ZOPICLONE
     Dosage: 7 MG, QD
  4. NEXIUM [Concomitant]
     Active Substance: ESOMEPRAZOLE MAGNESIUM
     Dosage: 40 MG, QD
  5. REPATHA [Suspect]
     Active Substance: EVOLOCUMAB
     Indication: HYPERCHOLESTEROLAEMIA
     Dosage: 140 MG, Q2WK
     Route: 058
     Dates: start: 20160427, end: 20161221
  6. PROLIA [Concomitant]
     Active Substance: DENOSUMAB
     Dosage: 60 MG, UNK
  7. ASPIRIN. [Concomitant]
     Active Substance: ASPIRIN
     Dosage: 75 MG, QD
  8. SOLPADEINE [Concomitant]
     Indication: ARTHRALGIA

REACTIONS (21)
  - Lung infection [Unknown]
  - Flushing [Not Recovered/Not Resolved]
  - Skin burning sensation [Not Recovered/Not Resolved]
  - Photosensitivity reaction [Unknown]
  - Injection site reaction [Recovered/Resolved]
  - Weight decreased [Unknown]
  - Lower respiratory tract infection [Unknown]
  - Sinusitis [Not Recovered/Not Resolved]
  - Myalgia [Unknown]
  - Arthralgia [Unknown]
  - Ear pain [Unknown]
  - Decreased appetite [Unknown]
  - Spinal pain [Unknown]
  - Gingival bleeding [Unknown]
  - Oropharyngeal pain [Recovered/Resolved]
  - Erythema [Recovered/Resolved]
  - Dry skin [Unknown]
  - Cough [Not Recovered/Not Resolved]
  - Sinus disorder [Unknown]
  - Paraesthesia [Not Recovered/Not Resolved]
  - Rhinorrhoea [Unknown]

NARRATIVE: CASE EVENT DATE: 2016
